FAERS Safety Report 18591021 (Version 1)
Quarter: 2020Q4

REPORT INFORMATION
  Report Type: Spontaneous
  Country: US (occurrence: US)
  Receive Date: 20201208
  Receipt Date: 20201208
  Transmission Date: 20210114
  Serious: Yes (Other)
  Sender: FDA-Public Use
  Company Number: US-MYLANLABS-2020M1100885

PATIENT
  Age: 37 Year
  Sex: Female

DRUGS (1)
  1. LOPERAMIDE [Suspect]
     Active Substance: LOPERAMIDE
     Indication: DRUG THERAPY
     Dosage: 400 MILLIGRAM, QD, 200 PILLS
     Route: 065

REACTIONS (2)
  - Drug use disorder [Recovered/Resolved]
  - Drug abuse [Recovered/Resolved]
